FAERS Safety Report 23676021 (Version 1)
Quarter: 2024Q1

REPORT INFORMATION
  Report Type: Spontaneous
  Country: CN (occurrence: CN)
  Receive Date: 20240327
  Receipt Date: 20240327
  Transmission Date: 20240409
  Serious: No
  Sender: FDA-Public Use
  Company Number: CN-009507513-2403CHN004836

PATIENT
  Age: 38 Year
  Sex: Male

DRUGS (4)
  1. MOLNUPIRAVIR [Suspect]
     Active Substance: MOLNUPIRAVIR
     Indication: COVID-19
     Dosage: USED FOR 4 WEEKS
     Route: 048
     Dates: start: 202212, end: 2023
  2. MOLNUPIRAVIR [Suspect]
     Active Substance: MOLNUPIRAVIR
     Indication: COVID-19 treatment
  3. RO-0622 [Concomitant]
     Active Substance: RO-0622
     Indication: Severe acute respiratory syndrome
     Dosage: 2 WEEKS TOTALLY
  4. RO-0622 [Concomitant]
     Active Substance: RO-0622
     Indication: COVID-19

REACTIONS (1)
  - Product use in unapproved indication [Unknown]

NARRATIVE: CASE EVENT DATE: 20221201
